FAERS Safety Report 12901848 (Version 2)
Quarter: 2016Q4

REPORT INFORMATION
  Report Type: Spontaneous
  Country: US (occurrence: US)
  Receive Date: 20161102
  Receipt Date: 20161214
  Transmission Date: 20170207
  Serious: No
  Sender: FDA-Public Use
  Company Number: US-B.I. PHARMACEUTICALS,INC./RIDGEFIELD-2016-BI-067125

PATIENT
  Sex: Female

DRUGS (3)
  1. PRADAXA [Suspect]
     Active Substance: DABIGATRAN ETEXILATE MESYLATE
     Indication: ATRIAL FIBRILLATION
  2. VALSARTAN. [Concomitant]
     Active Substance: VALSARTAN
     Indication: HYPERTENSION
     Route: 048
  3. PRADAXA [Suspect]
     Active Substance: DABIGATRAN ETEXILATE MESYLATE
     Indication: THROMBOSIS PROPHYLAXIS
     Route: 048
     Dates: start: 201604, end: 201609

REACTIONS (6)
  - Urine odour abnormal [Unknown]
  - Skin odour abnormal [Unknown]
  - Diarrhoea [Unknown]
  - Breath odour [Unknown]
  - Abnormal faeces [Unknown]
  - Dental caries [Unknown]

NARRATIVE: CASE EVENT DATE: 201604
